FAERS Safety Report 7926264-5 (Version None)
Quarter: 2011Q4

REPORT INFORMATION
  Report Type: 
  Country: None (occurrence: None)
  Receive Date: 20111118
  Receipt Date: 20111114
  Transmission Date: 20120403
  Serious: Yes (Hospitalization)
  Sender: FDA-Public Use
  Company Number: US-BIOGENIDEC-2011BI037439

PATIENT
  Age: 48 Year
  Sex: Female

DRUGS (4)
  1. AVONEX [Suspect]
     Route: 030
     Dates: start: 20011201, end: 20030801
  2. AVONEX [Suspect]
     Route: 030
     Dates: start: 20090401, end: 20110101
  3. AVONEX [Suspect]
     Indication: MULTIPLE SCLEROSIS
     Route: 030
     Dates: start: 20110101
  4. AVONEX [Suspect]
     Route: 030
     Dates: start: 20030801, end: 20070901

REACTIONS (5)
  - ROTATOR CUFF SYNDROME [None]
  - MUSCLE RUPTURE [None]
  - SCAR [None]
  - NECK PAIN [None]
  - EXOSTOSIS [None]
